FAERS Safety Report 14519474 (Version 1)
Quarter: 2018Q1

REPORT INFORMATION
  Report Type: Spontaneous
  Country: US (occurrence: US)
  Receive Date: 20180212
  Receipt Date: 20180212
  Transmission Date: 20180509
  Serious: Yes (Hospitalization, Other)
  Sender: FDA-Public Use
  Company Number: US-GLAXOSMITHKLINE-US2018021876

PATIENT
  Age: 82 Year
  Sex: Female

DRUGS (7)
  1. PANADOL [Suspect]
     Active Substance: ACETAMINOPHEN
     Indication: PAIN
     Dosage: HIGH AMOUNTS
     Route: 065
  2. ENOXAPARIN [Concomitant]
     Active Substance: ENOXAPARIN
     Indication: DEEP VEIN THROMBOSIS
     Dosage: UNK
  3. FUROSEMIDE. [Concomitant]
     Active Substance: FUROSEMIDE
     Dosage: UNK
  4. LEVOFLOXACIN. [Concomitant]
     Active Substance: LEVOFLOXACIN
     Indication: EOSINOPHILIC PNEUMONIA
     Dosage: UNK
  5. TRAMADOL. [Concomitant]
     Active Substance: TRAMADOL
     Indication: PAIN
     Dosage: AS NECESSARY
  6. LINEZOLID. [Concomitant]
     Active Substance: LINEZOLID
     Indication: EOSINOPHILIC PNEUMONIA
     Dosage: UNK
  7. ERTAPENEM. [Concomitant]
     Active Substance: ERTAPENEM SODIUM
     Dosage: UNK

REACTIONS (3)
  - Overdose [Recovered/Resolved]
  - Dyspnoea [Recovered/Resolved]
  - Metabolic acidosis [Recovered/Resolved]
